FAERS Safety Report 8530527-2 (Version None)
Quarter: 2012Q3

REPORT INFORMATION
  Report Type: 
  Country: None (occurrence: None)
  Receive Date: 20120723
  Receipt Date: 20120713
  Transmission Date: 20120928
  Serious: Yes (Other)
  Sender: FDA-Public Use
  Company Number: JP-PFIZER INC-2011031810

PATIENT
  Sex: Female

DRUGS (2)
  1. XALATAN [Suspect]
     Dosage: ONCE AT NIGHT
     Route: 047
  2. NASONEX [Suspect]
     Indication: RHINITIS
     Dosage: UNK

REACTIONS (3)
  - EYELID OEDEMA [None]
  - ERYTHEMA OF EYELID [None]
  - EYELIDS PRURITUS [None]
